FAERS Safety Report 8504875-6 (Version None)
Quarter: 2012Q2

REPORT INFORMATION
  Report Type: 
  Country: None (occurrence: None)
  Receive Date: 20120405
  Receipt Date: 20100813
  Transmission Date: 20120825
  Serious: Yes (Other)
  Sender: FDA-Public Use
  Company Number: PHHY2010US54008

PATIENT
  Age: 73 Year
  Sex: Female

DRUGS (13)
  1. CALCIUM CARBONATE [Concomitant]
  2. LIPITOR [Concomitant]
  3. METHOCARBAMOL [Concomitant]
  4. VITAMIN B (NO INGREDIENTS/SUBSTANCES) [Concomitant]
  5. IRON (IRON) [Concomitant]
  6. ACETAMINOPHEN [Concomitant]
  7. LEVOXYL [Concomitant]
  8. CLARINEX (LORATADINE, PSEUDOEPHEDRINE SULFATE) [Concomitant]
  9. HYOSCYAMINE (HYOSCYAMINE) [Concomitant]
  10. FERROUS SULFATE TAB [Concomitant]
  11. LOSARTAN POTASSIUM AND HYDROCHLOROTHIAZIDE [Concomitant]
  12. RECLAST [Suspect]
     Dosage: , INFUSION
     Dates: start: 20100804
  13. TOPRAL (SULTOPRIDE) [Concomitant]

REACTIONS (8)
  - NAUSEA [None]
  - MUSCLE SPASMS [None]
  - EYE PAIN [None]
  - DEHYDRATION [None]
  - VOMITING [None]
  - GENERAL PHYSICAL CONDITION ABNORMAL [None]
  - HEADACHE [None]
  - DYSGEUSIA [None]
